FAERS Safety Report 10233447 (Version 1)
Quarter: 2014Q2

REPORT INFORMATION
  Report Type: Spontaneous
  Country: US (occurrence: None)
  Receive Date: 20140506
  Receipt Date: 20140506
  Transmission Date: 20141212
  Serious: Yes (Other)
  Sender: FDA-Public Use
  Company Number: 1211979

PATIENT
  Age: 42 Year
  Sex: Female

DRUGS (3)
  1. BEVACIZUMAB (BEVACIZUMAB) [Suspect]
     Indication: BREAST CANCER
     Dosage: ON DAYS 1 AND 15 OF A 28-DAY CYCLE (10 MG/KG),INTRAVENOUS (NOT OTHERWISE SPECIFIED)
     Route: 042
     Dates: start: 200809
  2. PACLITAXEL PROTEIN-BOUND [Suspect]
     Indication: BREAST CANCER
     Dosage: ON DAYS 1 AND 15 OF A 28-DAY CYCLE (150 MG/M2),INTRAVENOUS (NOT OTHERWISE SPECIFIED)
     Route: 042
     Dates: start: 200809
  3. GEMCITABINE (GEMCITABINE HYDROCHLORIDE) [Suspect]
     Indication: BREAST CANCER
     Dosage: ON DAYS 1 AND 15 OF A 28-DAY CYCLE (1500 MG/M2),INTRAVENOUS (NOT OTHERWISE SPECIFIED)
     Route: 042
     Dates: start: 200809

REACTIONS (1)
  - Catheter site infection [None]
